FAERS Safety Report 25349873 (Version 1)
Quarter: 2025Q2

REPORT INFORMATION
  Report Type: Report from Study
  Country: US (occurrence: US)
  Receive Date: 20250523
  Receipt Date: 20250523
  Transmission Date: 20250717
  Serious: Yes (Death, Other)
  Sender: ALEXION PHARMACEUTICALS
  Company Number: US-AstraZeneca-CH-00874647A

PATIENT
  Age: 70 Year

DRUGS (1)
  1. DAPAGLIFLOZIN [Suspect]
     Active Substance: DAPAGLIFLOZIN
     Route: 065

REACTIONS (4)
  - Cardiac disorder [Fatal]
  - Parkinson^s disease [Unknown]
  - Hepatic cirrhosis [Unknown]
  - Pneumoconiosis [Unknown]
